FAERS Safety Report 10936724 (Version 1)
Quarter: 2015Q1

REPORT INFORMATION
  Report Type: Spontaneous
  Country: US (occurrence: None)
  Receive Date: 20150212
  Receipt Date: 20150212
  Transmission Date: 20150721
  Serious: No
  Sender: FDA-Public Use
  Company Number: TPA2011A00533

PATIENT
  Age: 80 Year
  Sex: Female
  Weight: 122.47 kg

DRUGS (5)
  1. TRIAMTERENCE / HCTZ (HYDROCHLOROTHIAZIDE, TRIAMTERENT) [Concomitant]
  2. ULORIC [Suspect]
     Active Substance: FEBUXOSTAT
     Indication: GOUT
     Route: 048
     Dates: start: 201012, end: 201101
  3. SYNTHROID [Concomitant]
     Active Substance: LEVOTHYROXINE SODIUM
  4. METFORMIN [Concomitant]
     Active Substance: METFORMIN HYDROCHLORIDE
  5. LOVASTATIN (LOVASTATIN) [Concomitant]
     Active Substance: LOVASTATIN

REACTIONS (2)
  - Condition aggravated [None]
  - Gout [None]
